FAERS Safety Report 4616411-5 (Version None)
Quarter: 2005Q1

REPORT INFORMATION
  Report Type: 
  Country: None (occurrence: None)
  Receive Date: 20050321
  Receipt Date: 20040105
  Transmission Date: 20050727
  Serious: Yes (Other)
  Sender: FDA-Public Use
  Company Number: 7036

PATIENT
  Age: 61 Year
  Sex: Female

DRUGS (4)
  1. PACLITAXEL [Suspect]
     Indication: ENDOMETRIAL CANCER STAGE I
     Dosage: 175 MG/M2 Q3W
  2. PACLITAXEL [Suspect]
     Indication: OVARIAN CANCER
     Dosage: 175 MG/M2 Q3W
  3. CARBOPLATIN [Suspect]
     Indication: ENDOMETRIAL CANCER STAGE I
     Dosage: 5 AUC FREQ
  4. CARBOPLATIN [Suspect]
     Indication: OVARIAN CANCER
     Dosage: 5 AUC FREQ

REACTIONS (2)
  - NEUROPATHY PERIPHERAL [None]
  - PARAESTHESIA [None]
